FAERS Safety Report 11789765 (Version 3)
Quarter: 2015Q4

REPORT INFORMATION
  Report Type: Spontaneous
  Country: JP (occurrence: JP)
  Receive Date: 20151201
  Receipt Date: 20151230
  Transmission Date: 20160305
  Serious: Yes (Other)
  Sender: FDA-Public Use
  Company Number: JP-SA-2015SA195361

PATIENT
  Sex: Male

DRUGS (10)
  1. DUROTEP [Concomitant]
     Active Substance: FENTANYL
     Route: 065
  2. OXYCODONE HYDROCHLORIDE. [Concomitant]
     Active Substance: OXYCODONE HYDROCHLORIDE
     Dosage: POWDER (EXCEPT DUSTING POWDER),
     Route: 065
  3. FLIVAS [Concomitant]
     Active Substance: NAFTOPIDIL
     Route: 048
  4. TAKECAB [Concomitant]
     Route: 065
  5. DEPAS [Concomitant]
     Active Substance: ETIZOLAM
     Route: 065
     Dates: end: 20151119
  6. ACTONEL [Concomitant]
     Active Substance: RISEDRONATE SODIUM
     Route: 065
  7. PERAPRIN [Concomitant]
     Active Substance: METOCLOPRAMIDE
     Route: 065
     Dates: end: 20151119
  8. MYSLEE [Suspect]
     Active Substance: ZOLPIDEM TARTRATE
     Route: 048
  9. MAGMITT [Concomitant]
     Active Substance: MAGNESIUM OXIDE
     Route: 065
  10. CALONAL [Concomitant]
     Active Substance: ACETAMINOPHEN
     Route: 065

REACTIONS (1)
  - Delirium [Recovered/Resolved]
